FAERS Safety Report 5872995-0 (Version None)
Quarter: 2008Q3

REPORT INFORMATION
  Report Type: 
  Country: None (occurrence: None)
  Receive Date: 20080903
  Receipt Date: 20080818
  Transmission Date: 20090109
  Serious: Yes (Hospitalization)
  Sender: FDA-Public Use
  Company Number: 1-16544467

PATIENT
  Age: 14 Year
  Sex: Female

DRUGS (1)
  1. MINOCYCLINE HCL [Suspect]
     Indication: ACNE
     Dates: start: 20051201, end: 20060101

REACTIONS (3)
  - INFLUENZA LIKE ILLNESS [None]
  - INTRACRANIAL PRESSURE INCREASED [None]
  - OPTIC NERVE DISORDER [None]
